FAERS Safety Report 8101746-4 (Version None)
Quarter: 2012Q1

REPORT INFORMATION
  Report Type: 
  Country: None (occurrence: None)
  Receive Date: 20120131
  Receipt Date: 20120119
  Transmission Date: 20120608
  Serious: Yes (Other)
  Sender: FDA-Public Use
  Company Number: PHHY2012BR005188

PATIENT
  Sex: Female

DRUGS (1)
  1. FORMOTEROL FUMARATE [Suspect]
     Indication: BRONCHITIS
     Dosage: 2 INHALATIONS, A DAY
     Dates: start: 20110606

REACTIONS (5)
  - DEPRESSION [None]
  - FATIGUE [None]
  - DEPRESSED MOOD [None]
  - DYSPNOEA [None]
  - TREMOR [None]
